FAERS Safety Report 6054015-0 (Version None)
Quarter: 2009Q1

REPORT INFORMATION
  Report Type: 
  Country: None (occurrence: None)
  Receive Date: 20090127
  Receipt Date: 20090115
  Transmission Date: 20090719
  Serious: Yes (Hospitalization, Other)
  Sender: FDA-Public Use
  Company Number: JP-PFIZER INC-2009157296

PATIENT

DRUGS (2)
  1. SOLU-MEDROL [Suspect]
     Indication: PNEUMONIA
     Route: 042
  2. METHOTREXATE SODIUM [Suspect]
     Indication: MUSCULOSKELETAL PAIN

REACTIONS (2)
  - PNEUMONIA [None]
  - VISUAL IMPAIRMENT [None]
